FAERS Safety Report 10195174 (Version 1)
Quarter: 2014Q2

REPORT INFORMATION
  Report Type: Spontaneous
  Country: US (occurrence: US)
  Receive Date: 20140526
  Receipt Date: 20140526
  Transmission Date: 20141212
  Serious: Yes (Hospitalization)
  Sender: FDA-Public Use
  Company Number: US-DRREDDYS-USA/USA/14/0040577

PATIENT
  Age: 13 Year
  Sex: Female
  Weight: 59 kg

DRUGS (6)
  1. CITALOPRAM [Suspect]
     Indication: PRODUCT USED FOR UNKNOWN INDICATION
     Route: 065
  2. NAPROXEN SODIUM 220 MG [Suspect]
     Indication: PRODUCT USED FOR UNKNOWN INDICATION
     Route: 065
  3. OMEPRAZOLE [Suspect]
     Indication: PRODUCT USED FOR UNKNOWN INDICATION
     Route: 065
  4. ACETAMINOPHEN [Suspect]
     Indication: PRODUCT USED FOR UNKNOWN INDICATION
     Route: 065
  5. BUPROPION [Suspect]
     Indication: PRODUCT USED FOR UNKNOWN INDICATION
     Route: 065
  6. DIPHENHYDRAMINE [Suspect]
     Indication: PRODUCT USED FOR UNKNOWN INDICATION
     Route: 065

REACTIONS (22)
  - Intentional overdose [Unknown]
  - Agitation [Recovering/Resolving]
  - Hallucination [Recovering/Resolving]
  - Mydriasis [Unknown]
  - Flushing [Recovering/Resolving]
  - Urinary retention [Recovering/Resolving]
  - Tremor [Unknown]
  - Abnormal behaviour [Recovered/Resolved]
  - Myoclonus [Unknown]
  - Hypertension [Unknown]
  - Hyperthermia [Unknown]
  - Tachycardia [Unknown]
  - Tachypnoea [Unknown]
  - Muscle rigidity [Unknown]
  - Rhabdomyolysis [Unknown]
  - Mucosal dryness [Recovering/Resolving]
  - Electrocardiogram QT prolonged [Recovering/Resolving]
  - Sweat gland disorder [Recovering/Resolving]
  - Anxiety [Unknown]
  - Disorientation [Unknown]
  - Gastrointestinal sounds abnormal [Unknown]
  - Suicide attempt [Unknown]
